FAERS Safety Report 4433786-0 (Version None)
Quarter: 2004Q3

REPORT INFORMATION
  Report Type: 
  Country: None (occurrence: None)
  Receive Date: 20040826
  Receipt Date: 20040630
  Transmission Date: 20050211
  Serious: Yes (Other)
  Sender: FDA-Public Use
  Company Number: PHNU2004DE02329

PATIENT
  Sex: Female
  Weight: 60 kg

DRUGS (4)
  1. ZOMETA [Suspect]
     Indication: METASTASES TO BONE
     Dosage: 4 MG, QMO
     Dates: start: 20010701
  2. OXYGESIC [Concomitant]
     Indication: PAIN
     Dosage: 20 MG, BID
     Route: 048
  3. IBUPROFEN [Concomitant]
     Indication: PAIN
     Dosage: 600 MG, QD
     Route: 065
  4. NEURONTIN [Concomitant]
     Indication: PAIN
     Dosage: 600 MG, BID
     Route: 048

REACTIONS (3)
  - OSTEITIS [None]
  - OSTEOMYELITIS [None]
  - WOUND DEBRIDEMENT [None]
